FAERS Safety Report 7083173-4 (Version None)
Quarter: 2010Q4

REPORT INFORMATION
  Report Type: 
  Country: None (occurrence: None)
  Receive Date: 20101104
  Receipt Date: 20101027
  Transmission Date: 20110411
  Serious: Yes (Death, Life-Threatening, Other)
  Sender: FDA-Public Use
  Company Number: JP-ASTRAZENECA-2010SE23079

PATIENT
  Age: 79 Year
  Sex: Female

DRUGS (6)
  1. ECARD COMBINATION [Suspect]
     Indication: HYPERTENSION
     Route: 048
     Dates: start: 20100405, end: 20100414
  2. BASEN [Concomitant]
     Dosage: 0.2
     Route: 048
  3. WARFARIN [Concomitant]
     Route: 048
  4. MAINTATE [Concomitant]
     Route: 048
  5. DIGOSIN [Concomitant]
     Route: 065
  6. AMLODIPINE BESYLATE [Concomitant]
     Route: 048

REACTIONS (1)
  - AORTIC DISSECTION [None]
